FAERS Safety Report 6844558-1 (Version None)
Quarter: 2010Q3

REPORT INFORMATION
  Report Type: 
  Country: None (occurrence: None)
  Receive Date: 20100715
  Receipt Date: 20100709
  Transmission Date: 20110219
  Serious: Yes (Death)
  Sender: FDA-Public Use
  Company Number: SG-CELGENEUS-141-21880-10062089

PATIENT
  Sex: Male

DRUGS (29)
  1. REVLIMID [Suspect]
     Indication: MULTIPLE MYELOMA
     Route: 048
     Dates: start: 20100219, end: 20100407
  2. DEXAMETHASONE [Concomitant]
     Indication: MULTIPLE MYELOMA
     Route: 048
     Dates: start: 20100308
  3. DEXAMETHASONE [Concomitant]
     Route: 048
     Dates: start: 20100422, end: 20100424
  4. VELCADE [Concomitant]
     Indication: MULTIPLE MYELOMA
     Route: 065
     Dates: start: 20100308
  5. VELCADE [Concomitant]
     Route: 065
     Dates: start: 20100422, end: 20100429
  6. COTRIM [Concomitant]
     Indication: PRODUCT USED FOR UNKNOWN INDICATION
     Route: 048
     Dates: start: 20100508, end: 20100511
  7. COTRIM [Concomitant]
     Route: 048
     Dates: start: 20100422, end: 20100506
  8. OMEPRAZOLE [Concomitant]
     Indication: PRODUCT USED FOR UNKNOWN INDICATION
     Route: 048
     Dates: start: 20100508, end: 20100511
  9. OMEPRAZOLE [Concomitant]
     Route: 048
     Dates: start: 20100422, end: 20100506
  10. CIPROFLOXACIN [Concomitant]
     Indication: PRODUCT USED FOR UNKNOWN INDICATION
     Route: 048
     Dates: start: 20100508, end: 20100511
  11. CALCIUM CARBONATE [Concomitant]
     Indication: PRODUCT USED FOR UNKNOWN INDICATION
     Route: 048
     Dates: start: 20100508, end: 20100511
  12. KAOLIN [Concomitant]
     Indication: PRODUCT USED FOR UNKNOWN INDICATION
     Route: 048
     Dates: start: 20100508, end: 20100511
  13. LOPERAMIDE [Concomitant]
     Route: 048
     Dates: start: 20100508, end: 20100511
  14. POTASSIUM CHLORIDE [Concomitant]
     Indication: PRODUCT USED FOR UNKNOWN INDICATION
     Route: 048
     Dates: start: 20100508, end: 20100511
  15. HYPROMELLOSE [Concomitant]
     Route: 047
     Dates: start: 20100527, end: 20100603
  16. ACETYLCYSTEINE [Concomitant]
     Indication: PRODUCT USED FOR UNKNOWN INDICATION
     Route: 048
     Dates: start: 20100527, end: 20100603
  17. FOLIC ACID [Concomitant]
     Indication: PRODUCT USED FOR UNKNOWN INDICATION
     Route: 048
     Dates: start: 20100527, end: 20100603
  18. ANAREX [Concomitant]
     Indication: PRODUCT USED FOR UNKNOWN INDICATION
     Route: 048
     Dates: start: 20100527, end: 20100603
  19. PANTOPRAZOLE [Concomitant]
     Indication: PRODUCT USED FOR UNKNOWN INDICATION
     Route: 051
     Dates: start: 20100527, end: 20100603
  20. MORPHINE SULFATE [Concomitant]
     Indication: PAIN
     Route: 048
     Dates: start: 20100508, end: 20100511
  21. MORPHINE SULFATE [Concomitant]
     Route: 048
     Dates: start: 20100422, end: 20100506
  22. ACETAMINOPHEN [Concomitant]
     Indication: PAIN
     Route: 048
     Dates: start: 20100508, end: 20100511
  23. ACETAMINOPHEN [Concomitant]
     Route: 048
     Dates: start: 20100422, end: 20100506
  24. NYSTATIN [Concomitant]
     Indication: PRODUCT USED FOR UNKNOWN INDICATION
     Dosage: 100.000 UNIT/ML
     Route: 048
     Dates: start: 20100508, end: 20100511
  25. ACYCLOVIR [Concomitant]
     Indication: PRODUCT USED FOR UNKNOWN INDICATION
     Route: 048
     Dates: start: 20100508, end: 20100511
  26. ACYCLOVIR [Concomitant]
     Route: 048
     Dates: start: 20100422, end: 20100506
  27. KETOPROFEN [Concomitant]
     Indication: PAIN
     Route: 062
     Dates: start: 20100422, end: 20100506
  28. BIOMAG [Concomitant]
     Indication: PRODUCT USED FOR UNKNOWN INDICATION
     Route: 048
     Dates: start: 20100422, end: 20100506
  29. MAGNESIUM [Concomitant]
     Indication: PRODUCT USED FOR UNKNOWN INDICATION
     Route: 048
     Dates: start: 20100422, end: 20100506

REACTIONS (1)
  - DISEASE PROGRESSION [None]
